FAERS Safety Report 6762680-5 (Version None)
Quarter: 2010Q2

REPORT INFORMATION
  Report Type: 
  Country: None (occurrence: None)
  Receive Date: 20100609
  Receipt Date: 20100602
  Transmission Date: 20101027
  Serious: Yes (Hospitalization)
  Sender: FDA-Public Use
  Company Number: A0862073A

PATIENT
  Age: 72 Year
  Sex: Male
  Weight: 97.3 kg

DRUGS (1)
  1. AVANDIA [Suspect]
     Dosage: 4MG PER DAY
     Dates: start: 20040930, end: 20060520

REACTIONS (8)
  - ASTHENIA [None]
  - BLINDNESS [None]
  - BRADYCARDIA [None]
  - CARDIAC FAILURE CONGESTIVE [None]
  - CHRONOTROPIC INCOMPETENCE [None]
  - DYSPNOEA [None]
  - NODAL RHYTHM [None]
  - WEIGHT INCREASED [None]
